FAERS Safety Report 19006336 (Version 3)
Quarter: 2021Q2

REPORT INFORMATION
  Report Type: Report from Study
  Country: None (occurrence: DE)
  Receive Date: 20210315
  Receipt Date: 20210422
  Transmission Date: 20210717
  Serious: Yes (Hospitalization, Other)
  Sender: FDA-Public Use
  Company Number: DE-ABBVIE-21K-062-3814289-00

PATIENT
  Sex: Female

DRUGS (7)
  1. CORTISON [Suspect]
     Active Substance: CORTISONE ACETATE
     Indication: CROHN^S DISEASE
     Route: 065
  2. HUMIRA [Suspect]
     Active Substance: ADALIMUMAB
     Indication: CROHN^S DISEASE
     Route: 058
     Dates: start: 20110609
  3. ONDANSETRON [Concomitant]
     Active Substance: ONDANSETRON
     Indication: PROPHYLAXIS
     Route: 048
     Dates: start: 2003
  4. CORTISON [Suspect]
     Active Substance: CORTISONE ACETATE
     Indication: DEAFNESS
     Dosage: UP TO 170 MG IN SOME CASES
     Route: 065
  5. CORTISON [Suspect]
     Active Substance: CORTISONE ACETATE
     Indication: ECZEMA
     Route: 065
     Dates: start: 20210401, end: 202104
  6. CORTISON [Suspect]
     Active Substance: CORTISONE ACETATE
     Dosage: 1MG, 1 KNIFE TIP PER EAR, FOR BOTH EARS
     Route: 065
     Dates: start: 202104
  7. CORTISON [Suspect]
     Active Substance: CORTISONE ACETATE
     Route: 065
     Dates: start: 20210409, end: 202104

REACTIONS (14)
  - Deafness [Not Recovered/Not Resolved]
  - Tinnitus [Not Recovered/Not Resolved]
  - Scoliosis [Not Recovered/Not Resolved]
  - Folate deficiency [Recovering/Resolving]
  - Eczema [Not Recovered/Not Resolved]
  - Weight increased [Not Recovered/Not Resolved]
  - Metabolic disorder [Unknown]
  - Arthropathy [Not Recovered/Not Resolved]
  - Blood pressure increased [Not Recovered/Not Resolved]
  - Crohn^s disease [Unknown]
  - Deafness [Recovered/Resolved]
  - Stress [Not Recovered/Not Resolved]
  - Abdominal pain upper [Recovering/Resolving]
  - Zinc deficiency [Not Recovered/Not Resolved]

NARRATIVE: CASE EVENT DATE: 2018
